FAERS Safety Report 4598597-4 (Version None)
Quarter: 2005Q1

REPORT INFORMATION
  Report Type: 
  Country: None (occurrence: None)
  Receive Date: 20050304
  Receipt Date: 20050221
  Transmission Date: 20050727
  Serious: Yes (Other)
  Sender: FDA-Public Use
  Company Number: GB-ROCHE-396294

PATIENT
  Age: 82 Year
  Sex: Female

DRUGS (9)
  1. TAMIFLU [Suspect]
     Indication: INFLUENZA
     Route: 048
     Dates: start: 20050126, end: 20050131
  2. QUININE SULPHATE [Concomitant]
  3. SENNA [Concomitant]
     Dosage: NCCTE.
  4. BENDROFLUAZIDE [Concomitant]
  5. DIOCTYL [Concomitant]
  6. ZOTON [Concomitant]
  7. THYROXINE [Concomitant]
  8. PARACETAMOL [Concomitant]
  9. PHENYTOIN [Concomitant]

REACTIONS (3)
  - CHROMATURIA [None]
  - PROTEINURIA [None]
  - URINE ODOUR ABNORMAL [None]
